FAERS Safety Report 7534734-7 (Version None)
Quarter: 2011Q2

REPORT INFORMATION
  Report Type: 
  Country: None (occurrence: None)
  Receive Date: 20110609
  Receipt Date: 20110427
  Transmission Date: 20111010
  Serious: Yes (Death, Other)
  Sender: FDA-Public Use
  Company Number: PHNU2007DE03033

PATIENT
  Sex: Female
  Weight: 60 kg

DRUGS (5)
  1. CALCIUM CARBONATE [Concomitant]
     Dosage: 500 MG, UNK
     Route: 065
     Dates: start: 20070710
  2. FEMARA [Suspect]
     Indication: BREAST CANCER
     Route: 048
     Dates: start: 20070710, end: 20090603
  3. TRASTUZUMAB [Concomitant]
     Dates: start: 20090211, end: 20090603
  4. ALENDRONIC ACID [Concomitant]
     Dosage: 70 MG, QW
     Route: 065
     Dates: start: 20070710
  5. VITAMIN D [Concomitant]
     Dosage: 500 OT, QD
     Route: 065
     Dates: start: 20070710

REACTIONS (4)
  - NEOPLASM MALIGNANT [None]
  - DEATH [None]
  - METASTASES TO LUNG [None]
  - METASTASES TO LIVER [None]
